FAERS Safety Report 13279670 (Version 1)
Quarter: 2017Q1

REPORT INFORMATION
  Report Type: Spontaneous
  Country: US (occurrence: US)
  Receive Date: 20170228
  Receipt Date: 20170228
  Transmission Date: 20170428
  Serious: No
  Sender: FDA-Public Use
  Company Number: None

PATIENT
  Age: 71 Year
  Sex: Female
  Weight: 59.4 kg

DRUGS (6)
  1. VIT. D, FOLIC ACID, VIT. B - COMPLEX [Concomitant]
     Active Substance: FOLIC ACID\VITAMINS
  2. POTASSIUM [Concomitant]
     Active Substance: POTASSIUM
  3. ZICAM ALLERGY RELIEF [Suspect]
     Active Substance: HOMEOPATHICS
     Indication: HYPERSENSITIVITY
     Dosage: 1 SWAB EVERY 4 HOURS; NASAL SWAB?
     Dates: start: 20170224, end: 20170226
  4. THYROID MEDICATION [Concomitant]
     Active Substance: UNSPECIFIED INGREDIENT
  5. CRANBERRY. [Concomitant]
     Active Substance: CRANBERRY
  6. FISH OIL [Concomitant]
     Active Substance: FISH OIL

REACTIONS (3)
  - Epistaxis [None]
  - Nasal obstruction [None]
  - Sinus pain [None]

NARRATIVE: CASE EVENT DATE: 20170226
